FAERS Safety Report 9532303 (Version 3)
Quarter: 2013Q4

REPORT INFORMATION
  Report Type: Report from Study
  Country: US (occurrence: US)
  Receive Date: 20130918
  Receipt Date: 20131129
  Transmission Date: 20140711
  Serious: Yes (Hospitalization, Other)
  Sender: FDA-Public Use
  Company Number: PHEH2013US019502

PATIENT
  Age: 74 Year
  Sex: Male
  Weight: 88.45 kg

DRUGS (6)
  1. GILENYA [Suspect]
     Indication: MULTIPLE SCLEROSIS
     Dosage: 0.5 MG, QD
     Route: 048
     Dates: start: 20130829, end: 20130917
  2. ASA [Concomitant]
  3. CASTER [Concomitant]
  4. PLAVIX [Concomitant]
  5. KEPRA [Concomitant]
  6. TAMSUGEN [Concomitant]

REACTIONS (2)
  - Renal failure acute [Unknown]
  - Urinary retention [Recovered/Resolved]
